FAERS Safety Report 20230076 (Version 1)
Quarter: 2021Q4

REPORT INFORMATION
  Report Type: Spontaneous
  Country: FR (occurrence: FR)
  Receive Date: 20211226
  Receipt Date: 20211226
  Transmission Date: 20220303
  Serious: Yes (Other)
  Sender: FDA-Public Use
  Company Number: None

PATIENT
  Age: 39 Year
  Sex: Female
  Weight: 116 kg

DRUGS (6)
  1. PREDNISONE [Suspect]
     Active Substance: PREDNISONE
     Indication: Thrombocytopenia
     Dosage: 80 MG
     Route: 048
     Dates: start: 202104, end: 20211123
  2. KARDEGIC [Suspect]
     Active Substance: ASPIRIN DL-LYSINE
     Indication: Haemorrhage prophylaxis
     Dosage: 1 DF, KARDEGIC 160 MG POWDER FOR ORAL SOLUTION IN SACHET
     Route: 048
     Dates: start: 202105
  3. FERROUS SULFATE [Suspect]
     Active Substance: FERROUS SULFATE
     Indication: Iron deficiency
     Dosage: 1 DF
     Route: 048
     Dates: start: 20210707
  4. TRANDATE [Suspect]
     Active Substance: LABETALOL HYDROCHLORIDE
     Indication: Hypertension
     Dosage: 1 DF, TRANDATE 200 MG FILM-COATED TABLETS
     Route: 048
     Dates: start: 20210409
  5. POTASSIUM CHLORIDE [Suspect]
     Active Substance: POTASSIUM CHLORIDE
     Indication: Hypokalaemia
     Dosage: 1 DF, KALEORID LP 1000 MG PROLONGED-RELEASE TABLET
     Route: 048
     Dates: start: 20211115
  6. PLAQUENIL [Suspect]
     Active Substance: HYDROXYCHLOROQUINE SULFATE
     Indication: Systemic lupus erythematosus
     Dosage: 1 DF
     Route: 048
     Dates: start: 20210409

REACTIONS (1)
  - Foetal death [Not Recovered/Not Resolved]

NARRATIVE: CASE EVENT DATE: 20211123
